FAERS Safety Report 19662056 (Version 13)
Quarter: 2024Q4

REPORT INFORMATION
  Report Type: Spontaneous
  Country: US (occurrence: US)
  Receive Date: 20210805
  Receipt Date: 20241108
  Transmission Date: 20250114
  Serious: Yes (Hospitalization, Other)
  Sender: PFIZER
  Company Number: US-PFIZER INC-202100935351

PATIENT
  Age: 71 Year
  Sex: Female
  Weight: 69.388 kg

DRUGS (9)
  1. IBRANCE [Suspect]
     Active Substance: PALBOCICLIB
     Indication: Breast cancer metastatic
     Dosage: 125 MG, CYCLIC
     Dates: start: 20210715, end: 2021
  2. IBRANCE [Suspect]
     Active Substance: PALBOCICLIB
     Dosage: 125 MG ONE TABLET DAILY 1-21 7 DAYS OFF/125 MG, 1 TABLET BY MOUTH 21 DAYS ON 7 DAYS OFF
     Route: 048
     Dates: start: 2021, end: 20240616
  3. LETROZOLE [Concomitant]
     Active Substance: LETROZOLE
     Indication: Neoplasm malignant
     Dosage: 2.5MG ONCE A DAY
     Dates: start: 2021
  4. TRAMADOL [Concomitant]
     Active Substance: TRAMADOL
     Indication: Pain
     Dosage: 50MG TWICE A DAY, AS NEEDED
  5. OMEPRAZOLE [Concomitant]
     Active Substance: OMEPRAZOLE
     Indication: Gastrooesophageal reflux disease
     Dosage: TAKES IN MORNING
  6. LOSARTAN [Concomitant]
     Active Substance: LOSARTAN
     Indication: Blood pressure abnormal
     Dosage: 2.5MG AS NEEDED, IF SYSTOLIC BLOOD PRESSURE ABOVE 130
  7. FAMOTIDINE [Concomitant]
     Active Substance: FAMOTIDINE
     Indication: Gastrooesophageal reflux disease
     Dosage: 40MG IN EVENING
  8. MIRALAX [Concomitant]
     Active Substance: POLYETHYLENE GLYCOL 3350
     Indication: Constipation
     Dosage: DAILY MEDICATIONS
  9. DULCOLAX (BISACODYL) [Concomitant]
     Active Substance: BISACODYL
     Indication: Constipation
     Dosage: DAILY MEDICATIONS

REACTIONS (17)
  - Pain [Not Recovered/Not Resolved]
  - Choking [Unknown]
  - Dysphagia [Unknown]
  - Blood potassium decreased [Unknown]
  - Feeling abnormal [Unknown]
  - Decreased appetite [Not Recovered/Not Resolved]
  - Nausea [Recovered/Resolved]
  - Vomiting [Recovered/Resolved]
  - Myalgia [Not Recovered/Not Resolved]
  - Hypotension [Recovered/Resolved]
  - Arthralgia [Unknown]
  - Back pain [Unknown]
  - Headache [Recovered/Resolved]
  - Eructation [Recovering/Resolving]
  - Constipation [Recovering/Resolving]
  - Dysphagia [Unknown]
  - Weight decreased [Unknown]

NARRATIVE: CASE EVENT DATE: 20210101
